FAERS Safety Report 5902816-9 (Version None)
Quarter: 2008Q3

REPORT INFORMATION
  Report Type: 
  Country: None (occurrence: None)
  Receive Date: 20080930
  Receipt Date: 20080918
  Transmission Date: 20090109
  Serious: Yes (Death, Other)
  Sender: FDA-Public Use
  Company Number: JP-JNJFOC-20080900959

PATIENT
  Sex: Female
  Weight: 51 kg

DRUGS (11)
  1. REMICADE [Suspect]
     Dosage: 30TH INFUSION
     Route: 042
  2. REMICADE [Suspect]
     Dosage: 19 INFUSIONS
     Route: 042
  3. REMICADE [Suspect]
     Indication: RHEUMATOID ARTHRITIS
     Dosage: 19 DOSES
     Route: 042
  4. RHEUMATREX [Suspect]
     Indication: RHEUMATOID ARTHRITIS
     Route: 048
  5. PREDNISOLONE [Suspect]
     Indication: RHEUMATOID ARTHRITIS
     Route: 048
  6. FOSAMAX [Concomitant]
     Indication: OSTEOPOROSIS
     Route: 048
  7. REVATIO [Concomitant]
     Indication: PULMONARY HYPERTENSION
     Route: 048
  8. FOLIAMIN [Concomitant]
     Indication: VITAMIN SUPPLEMENTATION
     Route: 048
  9. LANSOPRAZOLE [Concomitant]
     Indication: REFLUX OESOPHAGITIS
     Route: 048
  10. CELECOIX [Concomitant]
     Indication: REFLUX OESOPHAGITIS
     Route: 048
  11. NORVASC [Concomitant]
     Indication: HYPERTENSION
     Route: 048

REACTIONS (2)
  - HIP ARTHROPLASTY [None]
  - PNEUMOCYSTIS JIROVECI PNEUMONIA [None]
